FAERS Safety Report 7977329-3 (Version None)
Quarter: 2011Q4

REPORT INFORMATION
  Report Type: 
  Country: None (occurrence: None)
  Receive Date: 20111213
  Receipt Date: 20070807
  Transmission Date: 20120403
  Serious: Yes (Death)
  Sender: FDA-Public Use
  Company Number: PHHO2007EC13216

PATIENT
  Sex: Male

DRUGS (1)
  1. DIOVAN [Suspect]
     Indication: HYPERTENSION
     Dosage: 320 MG, QD
     Route: 048
     Dates: start: 20070131

REACTIONS (7)
  - PAIN [None]
  - RESPIRATORY ARREST [None]
  - PYREXIA [None]
  - DYSPHONIA [None]
  - OROPHARYNGEAL PAIN [None]
  - HEADACHE [None]
  - INFLUENZA [None]
